FAERS Safety Report 5120219-4 (Version None)
Quarter: 2006Q4

REPORT INFORMATION
  Report Type: 
  Country: None (occurrence: None)
  Receive Date: 20061002
  Receipt Date: 20061002
  Transmission Date: 20070319
  Serious: Yes (Life-Threatening, Hospitalization, Other)
  Sender: FDA-Public Use
  Company Number: None

PATIENT
  Age: 72 Year
  Sex: Male

DRUGS (12)
  1. CORICIDIN [Suspect]
     Indication: SINUSITIS
     Dosage: PO
     Route: 048
     Dates: start: 20060501
  2. AVELOX [Suspect]
     Indication: SINUSITIS
     Dosage: PO
     Route: 048
     Dates: start: 20060401, end: 20060501
  3. AVANDARYL [Suspect]
     Indication: DIABETES MELLITUS NON-INSULIN-DEPENDENT
     Dosage: 1 DF;BID;PO
     Route: 048
     Dates: start: 20060824
  4. AVANDIA [Suspect]
     Indication: DIABETES MELLITUS NON-INSULIN-DEPENDENT
     Dosage: 4 MG;QD;PO
     Route: 048
     Dates: end: 20060801
  5. VANCOMYCIN [Concomitant]
  6. LORAZEPAM [Concomitant]
  7. PROMETHAZINE [Concomitant]
  8. FLOMAX [Concomitant]
  9. METOPROLOL TARTRATE [Concomitant]
  10. COUMADIN [Concomitant]
  11. SACCHAROMYCES BOULARDII [Concomitant]
  12. INSULIN [Concomitant]

REACTIONS (8)
  - CARDIAC DISORDER [None]
  - CLOSTRIDIAL INFECTION [None]
  - CYSTITIS [None]
  - DIARRHOEA [None]
  - DRUG INTERACTION [None]
  - HEART RATE INCREASED [None]
  - PNEUMONIA [None]
  - RASH GENERALISED [None]
